FAERS Safety Report 4498164-7 (Version None)
Quarter: 2004Q4

REPORT INFORMATION
  Report Type: 
  Country: None (occurrence: None)
  Receive Date: 20041110
  Receipt Date: 20041103
  Transmission Date: 20050328
  Serious: Yes (Death, Life-Threatening, Disabling)
  Sender: FDA-Public Use
  Company Number: US-MERCK-0411USA00519

PATIENT
  Age: 55 Year
  Sex: Female

DRUGS (1)
  1. VIOXX [Suspect]
     Indication: ARTHRITIS
     Route: 048
     Dates: start: 20040822

REACTIONS (7)
  - ASPIRATION [None]
  - DEATH [None]
  - EATING DISORDER [None]
  - LUNG DISORDER [None]
  - OESOPHAGEAL DISCOMFORT [None]
  - STOMACH DISCOMFORT [None]
  - VOMITING [None]
